FAERS Safety Report 15856864 (Version 1)
Quarter: 2019Q1

REPORT INFORMATION
  Report Type: Spontaneous
  Country: US (occurrence: US)
  Receive Date: 20190122
  Receipt Date: 20190122
  Transmission Date: 20190417
  Serious: Yes (Hospitalization, Disabling)
  Sender: FDA-Public Use
  Company Number: None

PATIENT
  Age: 21 Year
  Sex: Female
  Weight: 101.25 kg

DRUGS (2)
  1. TYLENOL [Concomitant]
     Active Substance: ACETAMINOPHEN
  2. LUPRON DEPOT [Suspect]
     Active Substance: LEUPROLIDE ACETATE
     Indication: ENDOMETRIOSIS
     Dosage: ?          QUANTITY:10 INJECTION(S);OTHER FREQUENCY:ONCE EVERY 3 MONTS;?
     Route: 008
     Dates: start: 20120613, end: 20180312

REACTIONS (4)
  - Myocardial infarction [None]
  - Bone disorder [None]
  - Seizure [None]
  - Urticaria [None]

NARRATIVE: CASE EVENT DATE: 20170122
